FAERS Safety Report 8613057-9 (Version None)
Quarter: 2012Q3

REPORT INFORMATION
  Report Type: 
  Country: None (occurrence: None)
  Receive Date: 20120822
  Receipt Date: 20120817
  Transmission Date: 20120928
  Serious: No
  Sender: FDA-Public Use
  Company Number: US-PFIZER INC-2012203409

PATIENT
  Sex: Female

DRUGS (2)
  1. LYRICA [Suspect]
     Dosage: UNK, 2X/DAY
  2. LYRICA [Suspect]
     Dosage: UNK

REACTIONS (2)
  - HUNGER [None]
  - DYSPNOEA [None]
